FAERS Safety Report 23349904 (Version 1)
Quarter: 2023Q4

REPORT INFORMATION
  Report Type: Report from Study
  Country: CO (occurrence: CO)
  Receive Date: 20231229
  Receipt Date: 20231229
  Transmission Date: 20240110
  Serious: Yes (Other)
  Sender: FDA-Public Use
  Company Number: CO-Korea IPSEN-2023-28390

PATIENT
  Age: 28 Year
  Sex: Female
  Weight: 85 kg

DRUGS (7)
  1. LANREOTIDE ACETATE [Suspect]
     Active Substance: LANREOTIDE ACETATE
     Indication: Acromegaly
     Route: 058
     Dates: start: 20231222
  2. DAPAGLIFLOZIN [Concomitant]
     Active Substance: DAPAGLIFLOZIN
     Route: 048
     Dates: start: 20230623
  3. ATORVASTATIN [Concomitant]
     Active Substance: ATORVASTATIN
     Route: 048
     Dates: start: 20230623
  4. LEVOTHYROXINE [Concomitant]
     Active Substance: LEVOTHYROXINE
     Route: 048
     Dates: start: 20230623
  5. DESMOPRESSIN [Concomitant]
     Active Substance: DESMOPRESSIN
     Route: 048
     Dates: start: 20230623
  6. ESTROGENS [Concomitant]
     Active Substance: ESTROGENS
     Indication: Amenorrhoea
     Route: 048
     Dates: start: 20230623
  7. MEDROGESTONE [Concomitant]
     Active Substance: MEDROGESTONE
     Indication: Amenorrhoea
     Route: 048
     Dates: start: 20230623

REACTIONS (5)
  - Syncope [Not Recovered/Not Resolved]
  - Tachycardia [Not Recovered/Not Resolved]
  - Decreased appetite [Not Recovered/Not Resolved]
  - Headache [Not Recovered/Not Resolved]
  - Nausea [Not Recovered/Not Resolved]

NARRATIVE: CASE EVENT DATE: 20231201
